FAERS Safety Report 8173529-0 (Version None)
Quarter: 2012Q1

REPORT INFORMATION
  Report Type: 
  Country: None (occurrence: None)
  Receive Date: 20120229
  Receipt Date: 20120223
  Transmission Date: 20120608
  Serious: Yes (Other)
  Sender: FDA-Public Use
  Company Number: HU-B.I. PHARMACEUTICALS,INC./RIDGEFIELD-2012-AP-00158AP

PATIENT
  Sex: Male

DRUGS (1)
  1. TWYNSTA [Suspect]
     Indication: HYPERTONIA
     Dosage: STRENGTH/DAILY DOSE: 80/ 10 MG
     Route: 048
     Dates: start: 20110401, end: 20120101

REACTIONS (2)
  - FOLLICULITIS [None]
  - GINGIVITIS ULCERATIVE [None]
